FAERS Safety Report 5196482-0 (Version None)
Quarter: 2006Q4

REPORT INFORMATION
  Report Type: 
  Country: None (occurrence: None)
  Receive Date: 20061227
  Receipt Date: 20061212
  Transmission Date: 20070319
  Serious: Yes (Hospitalization)
  Sender: FDA-Public Use
  Company Number: 2006EU003306

PATIENT
  Age: 49 Year
  Sex: Female

DRUGS (8)
  1. FK506(TACROLIMUS) CAPSULE [Suspect]
     Indication: LIVER TRANSPLANT
     Dosage: 0.5 MG, UID/QD, ORAL
     Route: 048
     Dates: start: 19901219
  2. MYCOPHENOLATE MOFETIL [Concomitant]
     Indication: LIVER TRANSPLANT
     Dosage: 1G, BID, IV NOS
     Route: 042
     Dates: start: 20051219, end: 20051225
  3. MYCOPHENOLATE MOFETIL [Concomitant]
     Indication: LIVER TRANSPLANT
     Dosage: 1G, BID, IV NOS
     Route: 042
     Dates: start: 20051226
  4. METHYLPREDNISOLONE [Suspect]
     Indication: LIVER TRANSPLANT
     Dosage: 40 MG, UID/QD, UNKNOWN
     Dates: start: 20051218, end: 20060910
  5. PREDNISONE TAB [Suspect]
     Dosage: 5 MG, UID/QD, UNKNOWN
     Dates: start: 20051229, end: 20060405
  6. AMIODARONE HYDROCHLORIDE (AMODARONE HYDROCHLORIDE) [Concomitant]
  7. VALACICLOVIR (VALACICLOVIR HYDROCHLORIDE) [Concomitant]
  8. NICARDIPINE HYDROCHLORIDE [Concomitant]

REACTIONS (7)
  - CLOSTRIDIUM DIFFICILE COLITIS [None]
  - DIARRHOEA [None]
  - GASTRIC ULCER HAEMORRHAGE [None]
  - HAEMOGLOBIN DECREASED [None]
  - LUNG DISORDER [None]
  - STAPHYLOCOCCAL SEPSIS [None]
  - VOMITING [None]
